FAERS Safety Report 20447530 (Version 1)
Quarter: 2022Q1

REPORT INFORMATION
  Report Type: Report from Study
  Country: US (occurrence: US)
  Receive Date: 20220209
  Receipt Date: 20220209
  Transmission Date: 20220423
  Serious: No
  Sender: FDA-Public Use
  Company Number: US-HRARD-2021000325

PATIENT
  Sex: Female

DRUGS (12)
  1. LYSODREN [Suspect]
     Active Substance: MITOTANE
     Dosage: 3-3-2-2
     Route: 048
     Dates: start: 20200929, end: 20201228
  2. LYSODREN [Suspect]
     Active Substance: MITOTANE
     Dosage: 1500 MG QID / NTERRUPTION FOR 01 DAY AFTER THE SECOND DOSE OF COVID-19 VACCIN
     Route: 048
     Dates: start: 20210111
  3. LYSODREN [Suspect]
     Active Substance: MITOTANE
     Dosage: 1000 MG QID DUE TO HIGH CHOLESTEROL LEVELS
     Route: 048
  4. LYSODREN [Suspect]
     Active Substance: MITOTANE
     Dosage: 1500 MG QID SINCE 07 JUN 2021
     Route: 048
  5. ALBUTEROL [Concomitant]
     Active Substance: ALBUTEROL
  6. ELIQUIS [Concomitant]
     Active Substance: APIXABAN
  7. WIXELA INHUB [Concomitant]
     Active Substance: FLUTICASONE PROPIONATE\SALMETEROL XINAFOATE
  8. ASPIRIN [Concomitant]
     Active Substance: ASPIRIN
  9. ATORVASTATIN [Concomitant]
     Active Substance: ATORVASTATIN
  10. A-HYDROCORT [Concomitant]
     Active Substance: HYDROCORTISONE SODIUM SUCCINATE
     Dates: end: 20201228
  11. METOPROLOL [Concomitant]
     Active Substance: METOPROLOL
  12. SINGULAIR [Concomitant]
     Active Substance: MONTELUKAST SODIUM

REACTIONS (3)
  - Balance disorder [Unknown]
  - Nausea [Unknown]
  - Blood cholesterol increased [Unknown]

NARRATIVE: CASE EVENT DATE: 20210101
